FAERS Safety Report 8284513-0 (Version None)
Quarter: 2012Q2

REPORT INFORMATION
  Report Type: 
  Country: None (occurrence: None)
  Receive Date: 20120413
  Receipt Date: 20110826
  Transmission Date: 20120825
  Serious: No
  Sender: FDA-Public Use
  Company Number: US-ASTRAZENECA-2011SE52711

PATIENT
  Age: 78 Year
  Sex: Female

DRUGS (5)
  1. PRILOSEC OTC [Suspect]
     Indication: DYSPEPSIA
     Dosage: UNKNOWN
     Route: 048
  2. CALCIUM W/VITAMINS NOS [Concomitant]
     Dosage: UNKNOWN
  3. CALCIUM CARBONATE [Concomitant]
     Dosage: UNKNOWN
  4. RANITIDINE [Suspect]
     Dosage: UNKNOWN
     Route: 048
  5. NEXIUM [Suspect]
     Dosage: UNKNOWN
     Route: 048

REACTIONS (2)
  - OSTEOPOROSIS [None]
  - BONE DISORDER [None]
